FAERS Safety Report 5890232-8 (Version None)
Quarter: 2008Q3

REPORT INFORMATION
  Report Type: 
  Country: None (occurrence: None)
  Receive Date: 20080919
  Receipt Date: 20080908
  Transmission Date: 20090109
  Serious: Yes (Other)
  Sender: FDA-Public Use
  Company Number: FR-PFIZER INC-2008076815

PATIENT
  Age: 56 Year
  Sex: Male

DRUGS (4)
  1. LYRICA [Suspect]
     Indication: CEREBROVASCULAR ACCIDENT
  2. TAHOR [Concomitant]
  3. DURAGESIC-100 [Concomitant]
  4. PLAVIX [Concomitant]

REACTIONS (1)
  - HYPERTHERMIA [None]
